FAERS Safety Report 8853859 (Version 1)
Quarter: 2012Q4

REPORT INFORMATION
  Report Type: 
  Country: BR (occurrence: BR)
  Receive Date: 20121022
  Receipt Date: 20121022
  Transmission Date: 20130627
  Serious: Yes (Other)
  Sender: FDA-Public Use
  Company Number: PHHY2012BR093146

PATIENT
  Age: 46 Year
  Sex: Female

DRUGS (1)
  1. FORASEQ [Suspect]
     Indication: BRONCHIECTASIS
     Dosage: 1 DF, BID

REACTIONS (5)
  - Chronic obstructive pulmonary disease [Recovering/Resolving]
  - Bronchospasm [Unknown]
  - Dyspnoea [Unknown]
  - Respiratory tract infection [Unknown]
  - Hypersensitivity [Unknown]
